FAERS Safety Report 26114191 (Version 1)
Quarter: 2025Q4

REPORT INFORMATION
  Report Type: Spontaneous
  Country: CN (occurrence: CN)
  Receive Date: 20251202
  Receipt Date: 20251202
  Transmission Date: 20260118
  Serious: Yes (Other)
  Sender: PFIZER
  Company Number: CN-PFIZER INC-PV202500137695

PATIENT
  Sex: Male
  Weight: 65 kg

DRUGS (5)
  1. TOFACITINIB CITRATE [Suspect]
     Active Substance: TOFACITINIB CITRATE
     Indication: Colitis ulcerative
     Dosage: 5 MG, 2X/DAY
     Dates: start: 202204
  2. METRONIDAZOLE [Concomitant]
     Active Substance: METRONIDAZOLE
     Indication: Cytomegalovirus infection
     Dosage: UNK
     Route: 048
     Dates: start: 202204
  3. CEFIXIME [Concomitant]
     Active Substance: CEFIXIME
     Dosage: UNK
     Route: 048
     Dates: start: 2022
  4. KANG FU XIN [Concomitant]
     Dosage: UNK
     Route: 061
     Dates: start: 2022
  5. MUPIROCIN [Concomitant]
     Active Substance: MUPIROCIN
     Dosage: UNK
     Route: 061
     Dates: start: 2022

REACTIONS (4)
  - Abscess sterile [Unknown]
  - Subcutaneous abscess [Unknown]
  - Drug effective for unapproved indication [Unknown]
  - Off label use [Unknown]

NARRATIVE: CASE EVENT DATE: 20240803
